FAERS Safety Report 6522950-2 (Version None)
Quarter: 2009Q4

REPORT INFORMATION
  Report Type: 
  Country: None (occurrence: None)
  Receive Date: 20091222
  Receipt Date: 20091214
  Transmission Date: 20100525
  Serious: Yes (Hospitalization)
  Sender: FDA-Public Use
  Company Number: 230308J09BRA

PATIENT
  Age: 45 Year
  Sex: Female

DRUGS (5)
  1. REBIF [Suspect]
     Dosage: 44 MCG, 3 IN 1 WEEKS
     Dates: start: 20041201, end: 20091118
  2. AZATHIOPRINE [Concomitant]
  3. CORTISONE (CORTISONE /00014601/) [Concomitant]
  4. RIPTANOL [TRIPTANOL, AMITRIPTYLINE] (AMITRIPTYLINE /00002201/) [Concomitant]
  5. BACLOFEN [Concomitant]

REACTIONS (2)
  - FACIAL PALSY [None]
  - VISION BLURRED [None]
